FAERS Safety Report 8938429 (Version 1)
Quarter: 2012Q4

REPORT INFORMATION
  Report Type: 
  Country: US (occurrence: US)
  Receive Date: 20121130
  Receipt Date: 20121130
  Transmission Date: 20130627
  Serious: Yes (Death)
  Sender: FDA-Public Use
  Company Number: US-ACTELION-A-NJ2012-75377

PATIENT
  Age: 65 Year
  Sex: Male

DRUGS (3)
  1. VELETRI [Suspect]
     Indication: PULMONARY ARTERIAL HYPERTENSION
     Dosage: 14 ng/kg, per min
     Route: 041
     Dates: start: 20120831, end: 20121120
  2. SILDENAFIL [Concomitant]
  3. COUMADIN [Concomitant]

REACTIONS (2)
  - Death [Fatal]
  - Pneumonia [Unknown]
